FAERS Safety Report 19368165 (Version 1)
Quarter: 2021Q2

REPORT INFORMATION
  Report Type: Spontaneous
  Country: US (occurrence: US)
  Receive Date: 20210602
  Receipt Date: 20210602
  Transmission Date: 20210717
  Serious: No
  Sender: FDA-Public Use
  Company Number: US-ROCHE-2607140

PATIENT
  Sex: Female

DRUGS (1)
  1. OCREVUS [Suspect]
     Active Substance: OCRELIZUMAB
     Indication: PRODUCT USED FOR UNKNOWN INDICATION
     Dosage: ON 20/APR/2020, SHE RECEIVED SECOND DOSE OF OCRELIZUMAB INFUSION.
     Route: 065
     Dates: start: 201910

REACTIONS (2)
  - Photosensitivity reaction [Unknown]
  - Fatigue [Unknown]
